FAERS Safety Report 16097135 (Version 1)
Quarter: 2019Q1

REPORT INFORMATION
  Report Type: Spontaneous
  Country: IT (occurrence: IT)
  Receive Date: 20190320
  Receipt Date: 20190320
  Transmission Date: 20190418
  Serious: Yes (Hospitalization)
  Sender: FDA-Public Use
  Company Number: IT-PFIZER INC-2019116740

PATIENT
  Age: 46 Year
  Sex: Female

DRUGS (5)
  1. FENTANEST [Suspect]
     Active Substance: FENTANYL CITRATE
     Indication: ANAESTHESIA
     Dosage: 100 MG, AS NEEDED
     Route: 042
     Dates: end: 20190222
  2. PROPOFOL. [Suspect]
     Active Substance: PROPOFOL
     Indication: ANAESTHESIA
     Dosage: 200 MG, AS NEEDED
     Route: 042
     Dates: end: 20190222
  3. BILASTINE [Concomitant]
     Active Substance: BILASTINE
     Indication: ANAESTHETIC PREMEDICATION
     Dosage: 20 MG, UNK
     Route: 048
  4. PREDNISONE. [Concomitant]
     Active Substance: PREDNISONE
     Indication: PREMEDICATION
     Dosage: 25 MG, UNK
     Route: 048
     Dates: end: 20190222
  5. RANITIDINE. [Concomitant]
     Active Substance: RANITIDINE
     Indication: HYPERCHLORHYDRIA
     Dosage: 300 MG, UNK
     Route: 048

REACTIONS (1)
  - Airway complication of anaesthesia [Recovered/Resolved]

NARRATIVE: CASE EVENT DATE: 20190222
